FAERS Safety Report 6419120-5 (Version None)
Quarter: 2009Q4

REPORT INFORMATION
  Report Type: 
  Country: None (occurrence: None)
  Receive Date: 20091029
  Receipt Date: 20091016
  Transmission Date: 20100525
  Serious: Yes (Other)
  Sender: FDA-Public Use
  Company Number: BR-ROCHE-655991

PATIENT
  Sex: Male
  Weight: 90 kg

DRUGS (1)
  1. ROACUTAN [Suspect]
     Route: 048
     Dates: start: 20080101, end: 20081001

REACTIONS (3)
  - ACNE FULMINANS [None]
  - PURULENCE [None]
  - SKIN NECROSIS [None]
